FAERS Safety Report 5112890-8 (Version None)
Quarter: 2006Q3

REPORT INFORMATION
  Report Type: 
  Country: None (occurrence: None)
  Receive Date: 20060921
  Receipt Date: 20060921
  Transmission Date: 20061208
  Serious: Yes (Hospitalization)
  Sender: FDA-Public Use
  Company Number: None

PATIENT
  Age: 37 Year
  Sex: Male
  Weight: 97.0698 kg

DRUGS (1)
  1. CLOZAPINE [Suspect]
     Indication: SCHIZOPHRENIA
     Dosage: 500 MG A DAY REDUCED TO 50 MG A DAY-STOPPED OVER A 2 MONTH PERIOD

REACTIONS (7)
  - CONFUSIONAL STATE [None]
  - DRUG DEPENDENCE [None]
  - DRUG WITHDRAWAL SYNDROME [None]
  - DRY MOUTH [None]
  - HEART RATE INCREASED [None]
  - HYPERTENSION [None]
  - INSOMNIA [None]
